FAERS Safety Report 9832805 (Version 4)
Quarter: 2014Q1

REPORT INFORMATION
  Report Type: Spontaneous
  Country: FR (occurrence: FR)
  Receive Date: 20140121
  Receipt Date: 20140305
  Transmission Date: 20141002
  Serious: Yes (Death, Hospitalization)
  Sender: FDA-Public Use
  Company Number: FR-GLAXOSMITHKLINE-B0961186A

PATIENT
  Age: 29 Year
  Sex: Male
  Weight: 85 kg

DRUGS (5)
  1. VOTRIENT [Suspect]
     Indication: AMELOBLASTOMA
     Dosage: 400MG PER DAY
     Route: 048
     Dates: start: 201312, end: 20140108
  2. ADRIAMYCINE [Suspect]
     Indication: PRODUCT USED FOR UNKNOWN INDICATION
     Route: 065
  3. CHEMOTHERAPY [Concomitant]
     Dates: start: 201301
  4. INEXIUM [Concomitant]
     Indication: PRODUCT USED FOR UNKNOWN INDICATION
     Dosage: 40MG PER DAY
     Route: 048
  5. FENTANYL CITRATE [Concomitant]
     Indication: PRODUCT USED FOR UNKNOWN INDICATION
     Route: 065

REACTIONS (15)
  - Hepatic failure [Fatal]
  - Renal failure acute [Fatal]
  - Nausea [Not Recovered/Not Resolved]
  - Vomiting [Not Recovered/Not Resolved]
  - General physical health deterioration [Not Recovered/Not Resolved]
  - Oesophageal neoplasm [Not Recovered/Not Resolved]
  - Brain natriuretic peptide increased [Not Recovered/Not Resolved]
  - Metabolic acidosis [Not Recovered/Not Resolved]
  - Off label use [Unknown]
  - Cardiac failure acute [Fatal]
  - Multi-organ failure [Fatal]
  - Cardiogenic shock [Fatal]
  - Confusional state [Unknown]
  - Mucosal inflammation [Unknown]
  - Congestive cardiomyopathy [Fatal]
